FAERS Safety Report 4368336-0 (Version None)
Quarter: 2004Q2

REPORT INFORMATION
  Report Type: 
  Country: None (occurrence: None)
  Receive Date: 20040525
  Receipt Date: 20040514
  Transmission Date: 20050107
  Serious: Yes (Hospitalization)
  Sender: FDA-Public Use
  Company Number: STA-AE-04-MTX-187

PATIENT
  Age: 33 Year
  Sex: Female

DRUGS (16)
  1. METHOTREXATE [Suspect]
     Indication: RHEUMATOID ARTHRITIS
     Dosage: 15 MG 1 X PER WK, ORAL
     Route: 048
     Dates: start: 19990101, end: 20040401
  2. ENBREL [Suspect]
     Indication: RHEUMATOID ARTHRITIS
     Dosage: 25 MG XX PER 1 WK, SC
     Route: 058
     Dates: start: 20031006, end: 20040401
  3. DOLOTREN (DICLOFENAC  SODIUM) [Concomitant]
  4. ISONIAZID (IZONIAZID) [Concomitant]
  5. DEXNON (LEVOTHYROXINE SODIUM) [Concomitant]
  6. ACETAMINOPHEN [Concomitant]
  7. FOLIC ACID [Concomitant]
  8. CARISOPRODOL [Concomitant]
  9. OMEPRAZOLE [Concomitant]
  10. DOLOTREN (DICLOFENAC SODIUM) [Concomitant]
  11. ISONIAZID [Concomitant]
  12. DEXNON (LEVOTHYROXINE SODIUM) [Concomitant]
  13. ACETAMINOPHEN [Concomitant]
  14. FOLIC ACID [Concomitant]
  15. CARISOPRODOL [Concomitant]
  16. OMEPRAZOLE [Concomitant]

REACTIONS (5)
  - ASTHENIA [None]
  - INFECTION IN AN IMMUNOCOMPROMISED HOST [None]
  - PRODUCTIVE COUGH [None]
  - PYREXIA [None]
  - VARICELLA [None]
